FAERS Safety Report 9920203 (Version 3)
Quarter: 2014Q1

REPORT INFORMATION
  Report Type: Spontaneous
  Country: US (occurrence: US)
  Receive Date: 20140224
  Receipt Date: 20140303
  Transmission Date: 20141002
  Serious: Yes (Hospitalization, Other)
  Sender: FDA-Public Use
  Company Number: CHPA2014US002739

PATIENT
  Age: 69 Year
  Sex: Female

DRUGS (3)
  1. VOLTAREN GEL [Suspect]
     Indication: ARTHRITIS
     Dosage: SPARINGLY, PRN
     Route: 065
     Dates: start: 2010
  2. VOLTAREN GEL [Suspect]
     Indication: PAIN
  3. VOLTAREN GEL [Suspect]
     Indication: OFF LABEL USE

REACTIONS (8)
  - Intervertebral disc disorder [Recovering/Resolving]
  - Back pain [Recovering/Resolving]
  - Arthritis [Recovering/Resolving]
  - Back injury [Recovered/Resolved]
  - Expired drug administered [Unknown]
  - Drug administered at inappropriate site [Unknown]
  - Wrong technique in drug usage process [Unknown]
  - Therapeutic response unexpected [Unknown]
